FAERS Safety Report 4923698-8 (Version None)
Quarter: 2006Q1

REPORT INFORMATION
  Report Type: 
  Country: None (occurrence: None)
  Receive Date: 20060224
  Receipt Date: 20060224
  Transmission Date: 20060701
  Serious: Yes (Life-Threatening, Hospitalization)
  Sender: FDA-Public Use
  Company Number: None

PATIENT
  Age: 11 Year
  Sex: Female
  Weight: 34.927 kg

DRUGS (1)
  1. CEFPROZIL [Suspect]
     Indication: SINUSITIS
     Dosage: 1 TABLET TWICE A DAY PO
     Route: 048
     Dates: start: 20060221, end: 20060222

REACTIONS (5)
  - FACIAL PAIN [None]
  - LETHARGY [None]
  - PYREXIA [None]
  - SKIN DISCOLOURATION [None]
  - SWELLING FACE [None]
